FAERS Safety Report 5102571-9 (Version None)
Quarter: 2006Q3

REPORT INFORMATION
  Report Type: 
  Country: None (occurrence: None)
  Receive Date: 20060912
  Receipt Date: 20060905
  Transmission Date: 20061208
  Serious: Yes (Other)
  Sender: FDA-Public Use
  Company Number: 461576

PATIENT
  Sex: Male

DRUGS (3)
  1. EUCARDIC [Suspect]
     Dosage: 1UNIT PER DAY
     Route: 048
     Dates: start: 20011129
  2. CLOMIPRAMINE HCL [Suspect]
  3. WARFARIN SODIUM [Suspect]

REACTIONS (2)
  - DRUG INTERACTION [None]
  - INTERNATIONAL NORMALISED RATIO INCREASED [None]
